FAERS Safety Report 10256783 (Version 1)
Quarter: 2014Q2

REPORT INFORMATION
  Report Type: Spontaneous
  Country: NL (occurrence: NL)
  Receive Date: 20140624
  Receipt Date: 20140624
  Transmission Date: 20141212
  Serious: Yes (Death, Other)
  Sender: FDA-Public Use
  Company Number: NL-AMGEN-NLDSP2013093718

PATIENT
  Age: 65 Year
  Sex: Male

DRUGS (2)
  1. NEULASTA [Suspect]
     Indication: PROPHYLAXIS
     Dosage: 6 MG, 1X3W
     Route: 058
     Dates: start: 20121010, end: 20130318
  2. ARANESP [Suspect]
     Indication: ANAEMIA
     Dosage: 500 MUG, 1X3W
     Route: 058
     Dates: start: 20120911, end: 20130325

REACTIONS (5)
  - Death [Fatal]
  - Headache [Unknown]
  - Nausea [Unknown]
  - Dizziness [Unknown]
  - Blood test abnormal [Unknown]
